FAERS Safety Report 21237672 (Version 3)
Quarter: 2022Q4

REPORT INFORMATION
  Report Type: Report from Study
  Country: CN (occurrence: None)
  Receive Date: 20220822
  Receipt Date: 20221026
  Transmission Date: 20230113
  Serious: Yes (Death)
  Sender: FDA-Public Use
  Company Number: CN-ROCHE-3164704

PATIENT
  Age: 40 Year
  Sex: Male
  Weight: 62 kg

DRUGS (3)
  1. BEVACIZUMAB [Suspect]
     Active Substance: BEVACIZUMAB
     Indication: Colorectal cancer metastatic
     Route: 041
     Dates: start: 20211021, end: 20220624
  2. CAPECITABINE [Suspect]
     Active Substance: CAPECITABINE
     Indication: Colorectal cancer metastatic
     Route: 048
     Dates: start: 20211021, end: 202207
  3. OXALIPLATIN [Suspect]
     Active Substance: OXALIPLATIN
     Indication: Colorectal cancer metastatic
     Route: 041
     Dates: start: 20211021, end: 20220322

REACTIONS (1)
  - Death [Fatal]

NARRATIVE: CASE EVENT DATE: 20220730
